FAERS Safety Report 4451560-6 (Version None)
Quarter: 2004Q3

REPORT INFORMATION
  Report Type: 
  Country: None (occurrence: None)
  Receive Date: 20040915
  Receipt Date: 20040831
  Transmission Date: 20050211
  Serious: Yes (Hospitalization, Other)
  Sender: FDA-Public Use
  Company Number: 200414310BCC

PATIENT
  Age: 76 Year
  Sex: Male
  Weight: 86.1834 kg

DRUGS (6)
  1. ALEVE [Suspect]
     Indication: PYREXIA
     Dosage: 220 MG, TID, ORAL
     Route: 048
     Dates: start: 20040501
  2. ALEVE [Suspect]
     Indication: TREMOR
     Dosage: 220 MG, TID, ORAL
     Route: 048
     Dates: start: 20040501
  3. CHEMOTHERAPY [Concomitant]
  4. ACTOS [Concomitant]
  5. AMARYL [Concomitant]
  6. INSULIN [Concomitant]

REACTIONS (8)
  - BLOOD CALCIUM DECREASED [None]
  - BLOOD CALCIUM INCREASED [None]
  - BLOOD PRESSURE DECREASED [None]
  - DRUG WITHDRAWAL SYNDROME [None]
  - DYSPNOEA [None]
  - HIP FRACTURE [None]
  - PYREXIA [None]
  - TREMOR [None]
